FAERS Safety Report 4760556-6 (Version None)
Quarter: 2005Q3

REPORT INFORMATION
  Report Type: 
  Country: None (occurrence: None)
  Receive Date: 20050826
  Receipt Date: 20050120
  Transmission Date: 20060218
  Serious: Yes (Life-Threatening, Other)
  Sender: FDA-Public Use
  Company Number: USA-2005-0018451

PATIENT
  Age: 30 Year
  Sex: Male
  Weight: 68 kg

DRUGS (3)
  1. OXYCONTIN [Suspect]
  2. PERCOCET [Suspect]
  3. VICODIN [Suspect]

REACTIONS (1)
  - DRUG ABUSER [None]
